FAERS Safety Report 5997099-8 (Version None)
Quarter: 2008Q4

REPORT INFORMATION
  Report Type: 
  Country: None (occurrence: None)
  Receive Date: 20081212
  Receipt Date: 20081029
  Transmission Date: 20090506
  Serious: No
  Sender: FDA-Public Use
  Company Number: US-ABBOTT-08P-163-0484732-00

PATIENT
  Sex: Female
  Weight: 70.824 kg

DRUGS (13)
  1. HUMIRA [Suspect]
     Indication: CROHN'S DISEASE
     Route: 058
     Dates: start: 20080601
  2. NEW ANTIBIOTIC [Concomitant]
     Indication: CROHN'S DISEASE
     Route: 048
  3. PIOGLITAZONE [Concomitant]
     Indication: DIABETES MELLITUS
     Route: 048
  4. METFORMIN HCL [Concomitant]
     Indication: DIABETES MELLITUS
     Route: 048
  5. GLIMEPIRIDE [Concomitant]
     Indication: DIABETES MELLITUS
     Route: 048
  6. INSULIN GLARGINE [Concomitant]
     Indication: DIABETES MELLITUS
     Route: 048
  7. IMODIUM [Concomitant]
     Indication: CROHN'S DISEASE
     Route: 048
  8. BIMATOPROST [Concomitant]
     Indication: GLAUCOMA
  9. OMEPRAZOLE MAGNESIUM [Concomitant]
     Indication: DRUG USE FOR UNKNOWN INDICATION
     Route: 048
  10. ESTRADIOL [Concomitant]
     Indication: HORMONE REPLACEMENT THERAPY
     Route: 062
  11. ROSUVASTATIN [Concomitant]
     Indication: LOW DENSITY LIPOPROTEIN INCREASED
     Route: 048
  12. ACETYLSALICYLIC ACID SRT [Concomitant]
     Indication: DRUG USE FOR UNKNOWN INDICATION
     Route: 048
  13. FENOFIBRATE [Concomitant]
     Indication: DRUG USE FOR UNKNOWN INDICATION
     Route: 048

REACTIONS (2)
  - CANDIDIASIS [None]
  - HYPERHIDROSIS [None]
